FAERS Safety Report 22665860 (Version 6)
Quarter: 2023Q4

REPORT INFORMATION
  Report Type: Report from Study
  Country: US (occurrence: US)
  Receive Date: 20230703
  Receipt Date: 20231226
  Transmission Date: 20240109
  Serious: Yes (Other)
  Sender: FDA-Public Use
  Company Number: US-ABBVIE-5312039

PATIENT
  Sex: Female
  Weight: 86 kg

DRUGS (7)
  1. HUMIRA [Suspect]
     Active Substance: ADALIMUMAB
     Indication: Psoriatic arthropathy
     Dosage: 40 MG FORM STRENGTH?CITRATE FREE
     Route: 058
     Dates: start: 20230321
  2. HUMIRA [Suspect]
     Active Substance: ADALIMUMAB
     Indication: Ankylosing spondylitis
  3. LOSARTAN [Concomitant]
     Active Substance: LOSARTAN
     Indication: Blood pressure measurement
  4. GABAPENTIN [Concomitant]
     Active Substance: GABAPENTIN
     Indication: Pain
     Dosage: 100 MG FORM STRENGTH
     Route: 048
  5. CYCLOBENZAPRINE [Concomitant]
     Active Substance: CYCLOBENZAPRINE
     Indication: Muscle relaxant therapy
     Dosage: 1 PILL AT NIGHT
  6. PANTOPRAZOLE [Concomitant]
     Active Substance: PANTOPRAZOLE
     Indication: Barrett^s oesophagus
  7. TRAMADOL [Concomitant]
     Active Substance: TRAMADOL\TRAMADOL HYDROCHLORIDE
     Indication: Pain
     Dosage: 1.5 PILL PER DAY

REACTIONS (7)
  - Ovarian cyst [Not Recovered/Not Resolved]
  - Pain [Not Recovered/Not Resolved]
  - Anaemia [Unknown]
  - Heavy menstrual bleeding [Recovering/Resolving]
  - Upper respiratory tract infection [Recovering/Resolving]
  - Intermenstrual bleeding [Not Recovered/Not Resolved]
  - Uterine leiomyoma [Unknown]

NARRATIVE: CASE EVENT DATE: 20230101
